FAERS Safety Report 16463141 (Version 5)
Quarter: 2020Q2

REPORT INFORMATION
  Report Type: Spontaneous
  Country: IT (occurrence: IT)
  Receive Date: 20190621
  Receipt Date: 20200629
  Transmission Date: 20200713
  Serious: Yes (Hospitalization)
  Sender: FDA-Public Use
  Company Number: IT-ROCHE-2340277

PATIENT
  Age: 60 Year
  Sex: Male

DRUGS (5)
  1. DAPSONE. [Concomitant]
     Active Substance: DAPSONE
  2. METHOTREXATE. [Concomitant]
     Active Substance: METHOTREXATE
  3. CYCLOSPORINE. [Concomitant]
     Active Substance: CYCLOSPORINE
  4. RITUXIMAB. [Suspect]
     Active Substance: RITUXIMAB
     Indication: PEMPHIGOID
     Dosage: 2 X 1000 MG DOSES
     Route: 041
  5. PREDNISONE. [Concomitant]
     Active Substance: PREDNISONE

REACTIONS (3)
  - Off label use [Unknown]
  - Intentional product use issue [Unknown]
  - Pemphigoid [Recovered/Resolved]
